FAERS Safety Report 14057497 (Version 1)
Quarter: 2017Q4

REPORT INFORMATION
  Report Type: Spontaneous
  Country: US (occurrence: US)
  Receive Date: 20171006
  Receipt Date: 20171006
  Transmission Date: 20180321
  Serious: Yes (Life-Threatening)
  Sender: FDA-Public Use
  Company Number: US-FRESENIUS KABI-FK201708220

PATIENT
  Age: 66 Year
  Sex: Male

DRUGS (1)
  1. PROTAMINE SULFATE (MANUFACTURER UNKNOWN) [Suspect]
     Active Substance: PROTAMINE SULFATE
     Indication: PROCOAGULANT THERAPY
     Route: 042

REACTIONS (1)
  - Anaphylactic reaction [Recovered/Resolved]
